FAERS Safety Report 9257743 (Version 3)
Quarter: 2015Q1

REPORT INFORMATION
  Report Type: Spontaneous
  Country: CA (occurrence: CA)
  Receive Date: 20130426
  Receipt Date: 20150311
  Transmission Date: 20150721
  Serious: Yes (Other)
  Sender: FDA-Public Use
  Company Number: CA-ASTELLAS-2013US004349

PATIENT
  Sex: Male

DRUGS (3)
  1. PROGRAF [Suspect]
     Active Substance: TACROLIMUS\TACROLIMUS ANHYDROUS
     Dosage: UNKNOWN FREQ.2MG IN AM+1 MG IN PM
     Route: 048
     Dates: start: 20150129
  2. SIROLIMUS. [Concomitant]
     Active Substance: SIROLIMUS
     Indication: PROPHYLAXIS AGAINST TRANSPLANT REJECTION
     Dosage: UNK UNK, UNKNOWN FREQ.
     Route: 048
     Dates: start: 20150129
  3. PROGRAF [Suspect]
     Active Substance: TACROLIMUS\TACROLIMUS ANHYDROUS
     Indication: HEART TRANSPLANT
     Dosage: 3 MG IN AM+2 MG IN PM UNKNOWN FREQ.
     Route: 048
     Dates: start: 20130410, end: 20150129

REACTIONS (4)
  - Unevaluable event [Unknown]
  - Heart rate irregular [Unknown]
  - Weight decreased [Unknown]
  - Implantable defibrillator insertion [Unknown]
